FAERS Safety Report 8860755 (Version 1)
Quarter: 2012Q4

REPORT INFORMATION
  Report Type: 
  Country: BR (occurrence: BR)
  Receive Date: 20121026
  Receipt Date: 20121026
  Transmission Date: 20130627
  Serious: Yes (Other)
  Sender: FDA-Public Use
  Company Number: BR-BRISTOL-MYERS SQUIBB COMPANY-17047200

PATIENT
  Age: 65 Year
  Sex: Female
  Weight: 69 kg

DRUGS (3)
  1. APROVEL TABS 300 MG [Suspect]
     Indication: HYPERTENSION
     Dosage: 1Df:01 tabs in the morning plus 01 tab at night
     Route: 048
     Dates: start: 2005
  2. OLCADIL [Concomitant]
     Indication: RESTLESSNESS
     Dosage: Tablet
     Route: 048
     Dates: start: 2005
  3. CINNARIZINE [Concomitant]
     Indication: LABYRINTHITIS
     Dosage: Tabs,01 tabs  every morning
     Route: 048
     Dates: start: 2006

REACTIONS (2)
  - Breast cancer [Unknown]
  - Overdose [Unknown]
